FAERS Safety Report 18688679 (Version 1)
Quarter: 2020Q4

REPORT INFORMATION
  Report Type: Spontaneous
  Country: US (occurrence: US)
  Receive Date: 20201231
  Receipt Date: 20201231
  Transmission Date: 20210114
  Serious: Yes (Life-Threatening, Hospitalization)
  Sender: FDA-Public Use
  Company Number: None

PATIENT
  Age: 30 Year
  Sex: Female

DRUGS (1)
  1. CYTOTEC [Suspect]
     Active Substance: MISOPROSTOL
     Indication: LABOUR INDUCTION
     Route: 060
     Dates: start: 20191101, end: 20191101

REACTIONS (7)
  - Maternal exposure during pregnancy [None]
  - Foetal exposure during pregnancy [None]
  - Suspected product quality issue [None]
  - Foetal heart rate increased [None]
  - Pyrexia [None]
  - Infection [None]
  - Caesarean section [None]

NARRATIVE: CASE EVENT DATE: 20191101
